FAERS Safety Report 17738913 (Version 1)
Quarter: 2020Q2

REPORT INFORMATION
  Report Type: Spontaneous
  Country: US (occurrence: US)
  Receive Date: 20200501
  Receipt Date: 20200501
  Transmission Date: 20200714
  Serious: No
  Sender: FDA-Public Use
  Company Number: None

PATIENT
  Age: 17 Year
  Sex: Male

DRUGS (1)
  1. DEFERASIROX 360 MG ZYDUS PHARMACEUTICALS (USA) [Suspect]
     Active Substance: DEFERASIROX
     Indication: APLASTIC ANAEMIA
     Route: 048
     Dates: start: 202004, end: 202004

REACTIONS (3)
  - Therapy interrupted [None]
  - Hypersensitivity [None]
  - Rash [None]

NARRATIVE: CASE EVENT DATE: 202004
